FAERS Safety Report 7984919-0 (Version None)
Quarter: 2011Q4

REPORT INFORMATION
  Report Type: 
  Country: None (occurrence: None)
  Receive Date: 20111216
  Receipt Date: 20111013
  Transmission Date: 20120403
  Serious: No
  Sender: FDA-Public Use
  Company Number: US-ALLERGAN-1113561US

PATIENT
  Sex: Female

DRUGS (1)
  1. LATISSE [Suspect]
     Indication: GROWTH OF EYELASHES
     Dosage: 1 GTT, UNKNOWN
     Route: 061

REACTIONS (3)
  - SKIN HYPERPIGMENTATION [None]
  - WRONG TECHNIQUE IN DRUG USAGE PROCESS [None]
  - ERYTHEMA OF EYELID [None]
